FAERS Safety Report 6593840-4 (Version None)
Quarter: 2010Q1

REPORT INFORMATION
  Report Type: 
  Country: None (occurrence: None)
  Receive Date: 20100222
  Receipt Date: 20100216
  Transmission Date: 20100710
  Serious: Yes (Death, Hospitalization)
  Sender: FDA-Public Use
  Company Number: JP-BAYER-200912621BYL

PATIENT
  Age: 75 Year
  Sex: Male
  Weight: 60 kg

DRUGS (7)
  1. NEXAVAR [Suspect]
     Indication: HEPATIC NEOPLASM MALIGNANT
     Dosage: TOTAL DAILY DOSE: 800 MG  UNIT DOSE: 200 MG
     Route: 048
     Dates: start: 20090624, end: 20090629
  2. NEXAVAR [Suspect]
     Dosage: TOTAL DAILY DOSE: 400 MG  UNIT DOSE: 200 MG
     Route: 048
     Dates: start: 20090630, end: 20090708
  3. NEXAVAR [Suspect]
     Dosage: UNIT DOSE: 200 MG
     Route: 048
     Dates: start: 20090709, end: 20090725
  4. LIVACT [Concomitant]
     Dosage: BEFORE NEXAVAR ADMINISTRATION
     Route: 048
     Dates: end: 20090725
  5. SEISHOKU [Concomitant]
     Indication: PNEUMOTHORAX
     Route: 042
     Dates: start: 20090726
  6. ISOTONIC SODIUM CHLORIDE SOLUTION KIT [Concomitant]
     Indication: PNEUMOTHORAX
     Route: 041
     Dates: start: 20090726, end: 20090726
  7. FLUTIDE [Concomitant]
     Indication: PNEUMOTHORAX
     Route: 055
     Dates: start: 20090726, end: 20090727

REACTIONS (7)
  - ASTHMA [None]
  - HYPERTENSION [None]
  - PALMAR-PLANTAR ERYTHRODYSAESTHESIA SYNDROME [None]
  - PNEUMOTHORAX [None]
  - PYOTHORAX [None]
  - PYREXIA [None]
  - STOMATITIS [None]
